FAERS Safety Report 7541040-3 (Version None)
Quarter: 2011Q2

REPORT INFORMATION
  Report Type: 
  Country: None (occurrence: None)
  Receive Date: 20110610
  Receipt Date: 20101027
  Transmission Date: 20111010
  Serious: No
  Sender: FDA-Public Use
  Company Number: A0889105A

PATIENT
  Age: 80 Year
  Sex: Female

DRUGS (10)
  1. AMLODIPINE [Concomitant]
  2. LISINOPRIL [Concomitant]
  3. ALTABAX [Suspect]
     Dosage: 1APP PER DAY
     Route: 061
     Dates: start: 20101026
  4. LEVOXYL [Concomitant]
  5. FLONASE [Concomitant]
  6. ALLEGRA [Concomitant]
  7. SPIRIVA [Concomitant]
  8. ADVAIR DISKUS 100/50 [Concomitant]
  9. SIMVASTATIN [Concomitant]
  10. VENTOLIN HFA [Concomitant]

REACTIONS (3)
  - PAIN [None]
  - INSOMNIA [None]
  - EXPIRED DRUG ADMINISTERED [None]
